FAERS Safety Report 25196974 (Version 1)
Quarter: 2025Q2

REPORT INFORMATION
  Report Type: Spontaneous
  Country: FR (occurrence: FR)
  Receive Date: 20250415
  Receipt Date: 20250415
  Transmission Date: 20250716
  Serious: Yes (Death)
  Sender: AUROBINDO
  Company Number: FR-AFSSAPS-BR2025000174

PATIENT
  Age: 81 Year
  Sex: Female
  Weight: 50 kg

DRUGS (4)
  1. CLOZAPINE [Suspect]
     Active Substance: CLOZAPINE
     Indication: Product used for unknown indication
     Route: 048
     Dates: start: 20241031, end: 20241031
  2. GABAPENTIN [Suspect]
     Active Substance: GABAPENTIN
     Indication: Product used for unknown indication
     Route: 048
     Dates: start: 20241031, end: 20241031
  3. OXAZEPAM [Suspect]
     Active Substance: OXAZEPAM
     Indication: Product used for unknown indication
     Route: 048
     Dates: start: 20241031, end: 20241031
  4. TERALITHE [Suspect]
     Active Substance: LITHIUM CARBONATE
     Indication: Product administration error
     Route: 048
     Dates: start: 20241031, end: 20241031

REACTIONS (3)
  - Somnolence [Fatal]
  - Product administration error [Fatal]
  - Wrong patient [Fatal]

NARRATIVE: CASE EVENT DATE: 20241031
